FAERS Safety Report 10229103 (Version 2)
Quarter: 2014Q2

REPORT INFORMATION
  Report Type: Spontaneous
  Country: IT (occurrence: IT)
  Receive Date: 20140610
  Receipt Date: 20140619
  Transmission Date: 20141212
  Serious: Yes (Hospitalization)
  Sender: FDA-Public Use
  Company Number: IT-ROCHE-1415535

PATIENT
  Age: 50 Year
  Sex: Male

DRUGS (5)
  1. RIVOTRIL [Suspect]
     Indication: ADJUSTMENT DISORDER WITH DEPRESSED MOOD
     Route: 048
     Dates: start: 20140505, end: 20140505
  2. UROREC [Suspect]
     Indication: BENIGN PROSTATIC HYPERPLASIA
     Dosage: TABLET 4 MG
     Route: 048
     Dates: start: 20140505, end: 20140505
  3. STILNOX [Suspect]
     Indication: ADJUSTMENT DISORDER WITH DEPRESSED MOOD
     Dosage: TAB 10 MG
     Route: 048
     Dates: start: 20140505, end: 20140505
  4. AVODART [Suspect]
     Indication: BENIGN PROSTATIC HYPERPLASIA
     Dosage: TAB 0,5 MG
     Route: 048
     Dates: start: 20140505, end: 20140505
  5. ZYPREXA [Suspect]
     Indication: ADJUSTMENT DISORDER WITH DEPRESSED MOOD
     Dosage: TAB 10 MG
     Route: 048
     Dates: start: 20140505, end: 20140505

REACTIONS (5)
  - Toxicity to various agents [Recovered/Resolved]
  - Anxiety [Recovered/Resolved]
  - Depressed mood [Recovered/Resolved]
  - Intentional overdose [Unknown]
  - Suicide attempt [Recovered/Resolved]
